FAERS Safety Report 19658873 (Version 1)
Quarter: 2021Q3

REPORT INFORMATION
  Report Type: Report from Study
  Country: US (occurrence: US)
  Receive Date: 20210805
  Receipt Date: 20210805
  Transmission Date: 20211014
  Serious: No
  Sender: FDA-Public Use
  Company Number: NVSC2021US163472

PATIENT

DRUGS (1)
  1. KESIMPTA [Suspect]
     Active Substance: OFATUMUMAB
     Indication: MULTIPLE SCLEROSIS
     Dosage: 20 MG,BENEATH THE SKIN,USUALLY VIA INJECTION
     Route: 058
     Dates: start: 20201205

REACTIONS (3)
  - Anxiety [Unknown]
  - Product complaint [Unknown]
  - Influenza [Recovered/Resolved]
